FAERS Safety Report 7012929-9 (Version None)
Quarter: 2010Q3

REPORT INFORMATION
  Report Type: 
  Country: None (occurrence: None)
  Receive Date: 20100924
  Receipt Date: 20100913
  Transmission Date: 20110219
  Serious: Yes (Other)
  Sender: FDA-Public Use
  Company Number: US-PFIZER INC-2010115907

PATIENT
  Sex: Female
  Weight: 77.098 kg

DRUGS (2)
  1. XALATAN [Suspect]
     Dosage: 1 DROP IN BOTH EYES
     Route: 047
     Dates: start: 20080101
  2. PATADAY [Concomitant]
     Dosage: UNK

REACTIONS (4)
  - C-REACTIVE PROTEIN INCREASED [None]
  - EYE LASER SURGERY [None]
  - GROWTH OF EYELASHES [None]
  - INTRAOCULAR PRESSURE INCREASED [None]
